FAERS Safety Report 21076607 (Version 1)
Quarter: 2022Q3

REPORT INFORMATION
  Report Type: Report from Study
  Country: JP (occurrence: JP)
  Receive Date: 20220713
  Receipt Date: 20220713
  Transmission Date: 20221027
  Serious: Yes (Hospitalization)
  Sender: FDA-Public Use
  Company Number: JP-ELI_LILLY_AND_COMPANY-JP202202009184

PATIENT
  Age: 78 Year
  Sex: Female
  Weight: 48 kg

DRUGS (5)
  1. OLUMIANT [Suspect]
     Active Substance: BARICITINIB
     Indication: Rheumatoid arthritis
     Dosage: 4 MG, DAILY
     Route: 048
     Dates: start: 20181207, end: 20181222
  2. OLUMIANT [Suspect]
     Active Substance: BARICITINIB
     Dosage: 2 MG, DAILY
     Route: 048
     Dates: start: 20181229
  3. OLUMIANT [Suspect]
     Active Substance: BARICITINIB
     Dosage: 4 MG, DAILY
     Route: 048
     Dates: end: 20210819
  4. PREDONINE [Concomitant]
     Active Substance: PREDNISOLONE
     Dosage: 10 MG
  5. CELECOXIB [Concomitant]
     Active Substance: CELECOXIB
     Dosage: 200 MG

REACTIONS (2)
  - Colon cancer stage IV [Not Recovered/Not Resolved]
  - Metastases to mouth [Not Recovered/Not Resolved]

NARRATIVE: CASE EVENT DATE: 20210820
